FAERS Safety Report 5228027-0 (Version None)
Quarter: 2007Q1

REPORT INFORMATION
  Report Type: 
  Country: None (occurrence: None)
  Receive Date: 20061205
  Receipt Date: 20061005
  Transmission Date: 20070707
  Serious: Yes (Other)
  Sender: FDA-Public Use
  Company Number: PHEH2006US12527

PATIENT
  Sex: Female

DRUGS (1)
  1. EXJADE [Suspect]
     Dosage: SEE IMAGE
     Route: 048
     Dates: start: 20060912, end: 20061005

REACTIONS (1)
  - BLOOD CREATININE INCREASED [None]
